FAERS Safety Report 9167420 (Version 1)
Quarter: 2013Q1

REPORT INFORMATION
  Report Type: Spontaneous
  Country: US (occurrence: None)
  Receive Date: 20130304
  Receipt Date: 20130304
  Transmission Date: 20140127
  Serious: Yes (Other)
  Sender: FDA-Public Use
  Company Number: AMAG201300030

PATIENT
  Age: 72 Year
  Sex: Female
  Weight: 72.6 kg

DRUGS (7)
  1. FERAHEME (FERUMOXYTOL) INJECTION, 510MG [Suspect]
     Indication: RED BLOOD CELL COUNT DECREASED
     Route: 042
     Dates: start: 20121015, end: 20121015
  2. POTASSIUM CHLORIDE [Concomitant]
  3. PRILOSEC [Concomitant]
  4. CLARITIN (LORATADINE) [Concomitant]
  5. AZELASTINE (AZELASTINE) [Concomitant]
  6. PEPCID (FAMOTIDINE) [Concomitant]
  7. CHEMOTHERAPEUTICS [Concomitant]

REACTIONS (6)
  - Rash generalised [None]
  - Skin exfoliation [None]
  - Dry skin [None]
  - Stevens-Johnson syndrome [None]
  - Oropharyngeal pain [None]
  - Fatigue [None]
